FAERS Safety Report 18702245 (Version 2)
Quarter: 2021Q1

REPORT INFORMATION
  Report Type: Report from Study
  Country: CN (occurrence: CN)
  Receive Date: 20210105
  Receipt Date: 20210115
  Transmission Date: 20210419
  Serious: Yes (Hospitalization)
  Sender: FDA-Public Use
  Company Number: CN-ASTRAZENECA-2020SF75257

PATIENT
  Age: 20591 Day
  Sex: Female

DRUGS (46)
  1. SODIUM POTASSIUM MAGNESIUM CALCIUN AND GLUCOSE INJECTION [Concomitant]
     Indication: SUPPLEMENTATION THERAPY
     Dosage: 500.0ML ONCE/SINGLE ADMINISTRATION
     Route: 042
     Dates: start: 20201020, end: 20201020
  2. ONDANSETRON HYDROCHLORIDE TABLETS [Concomitant]
     Active Substance: ONDANSETRON HYDROCHLORIDE
     Indication: PROPHYLAXIS
     Route: 048
     Dates: start: 20201119, end: 20201121
  3. LIDOCAINE HYDROCHLORIDE INJECTION [Concomitant]
     Active Substance: LIDOCAINE HYDROCHLORIDE
     Indication: LOCAL ANAESTHESIA
     Dosage: 0.1G ONCE/SINGLE ADMINISTRATION
     Route: 058
     Dates: start: 20201027, end: 20201027
  4. RECOMBINANT HUMAN GRANULOCYTE COLONY?STIMULATING FACTOR INJECTION [Concomitant]
     Indication: WHITE BLOOD CELL COUNT DECREASED
     Dosage: 300UG/INHAL DAILY
     Route: 058
     Dates: start: 20201109, end: 20201110
  5. RECOMBINANT HUMAN GRANULOCYTE COLONY?STIMULATING FACTOR INJECTION [Concomitant]
     Indication: WHITE BLOOD CELL COUNT DECREASED
     Dosage: 300UG/INHAL DAILY
     Route: 058
     Dates: start: 20201121, end: 20201122
  6. CISPLATIN. [Suspect]
     Active Substance: CISPLATIN
     Indication: CERVIX CARCINOMA
     Route: 042
     Dates: start: 20201119, end: 20201119
  7. SODIUM POTASSIUM MAGNESIUM CALCIUN AND GLUCOSE INJECTION [Concomitant]
     Indication: SUPPLEMENTATION THERAPY
     Dosage: 500.0ML ONCE/SINGLE ADMINISTRATION
     Route: 042
     Dates: start: 20201127, end: 20201127
  8. ONDANSETRON HYDROCHLORIDE TABLETS [Concomitant]
     Active Substance: ONDANSETRON HYDROCHLORIDE
     Indication: VOMITING
     Route: 048
     Dates: start: 20201027, end: 20201029
  9. ONDANSETRON HYDROCHLORIDE TABLETS [Concomitant]
     Active Substance: ONDANSETRON HYDROCHLORIDE
     Indication: VOMITING
     Route: 048
     Dates: start: 20201127, end: 20201129
  10. MUCOPOLYSACCHARIDE POLYSULFATE CREAM [Concomitant]
     Indication: RASH
     Dosage: 14.0G ONCE/SINGLE ADMINISTRATION
     Route: 061
     Dates: start: 20201027, end: 20201128
  11. RECOMBINANT HUMAN GRANULOCYTE COLONY?STIMULATING FACTOR INJECTION [Concomitant]
     Indication: WHITE BLOOD CELL COUNT DECREASED
     Dosage: 300UG/INHAL DAILY
     Route: 058
     Dates: start: 20201121, end: 20201122
  12. RECOMBINANT HUMAN INTERLEUKIN?11 FOR INJECTION [Concomitant]
     Indication: PLATELET COUNT DECREASED
     Route: 058
     Dates: start: 20201216, end: 20201220
  13. SUSPENDED RED BLOOD CELLS [Concomitant]
     Indication: ANAEMIA
     Dosage: 2.0IU ONCE/SINGLE ADMINISTRATION
     Route: 042
     Dates: start: 20201222, end: 20201223
  14. DURVALUMAB. [Suspect]
     Active Substance: DURVALUMAB
     Indication: CERVIX CARCINOMA
     Route: 042
     Dates: start: 20201119, end: 20201119
  15. CISPLATIN. [Suspect]
     Active Substance: CISPLATIN
     Indication: CERVIX CARCINOMA
     Route: 042
     Dates: start: 20201127, end: 20201127
  16. SODIUM POTASSIUM MAGNESIUM CALCIUN AND GLUCOSE INJECTION [Concomitant]
     Indication: SUPPLEMENTATION THERAPY
     Dosage: 500.0ML ONCE/SINGLE ADMINISTRATION
     Route: 042
     Dates: start: 20201027, end: 20201027
  17. DURVALUMAB. [Suspect]
     Active Substance: DURVALUMAB
     Indication: CERVIX CARCINOMA
     Route: 042
     Dates: start: 20201013, end: 20201013
  18. CISPLATIN. [Suspect]
     Active Substance: CISPLATIN
     Indication: CERVIX CARCINOMA
     Route: 042
     Dates: start: 20201020, end: 20201020
  19. ONDANSETRON HYDROCHLORIDE TABLETS [Concomitant]
     Active Substance: ONDANSETRON HYDROCHLORIDE
     Indication: PROPHYLAXIS
     Route: 048
     Dates: start: 20201027, end: 20201029
  20. RECOMBINANT HUMAN GRANULOCYTE COLONY?STIMULATING FACTOR INJECTION [Concomitant]
     Indication: WHITE BLOOD CELL COUNT DECREASED
     Dosage: 300UG/INHAL DAILY
     Route: 058
     Dates: start: 20201116, end: 20201117
  21. RECOMBINANT HUMAN INTERLEUKIN?11 FOR INJECTION [Concomitant]
     Indication: PLATELET COUNT DECREASED
     Route: 058
     Dates: start: 20201222, end: 20201227
  22. BRACHYTHERAPY [Suspect]
     Active Substance: RADIATION THERAPY
     Indication: CERVIX CARCINOMA
     Route: 065
  23. ONDANSETRON HYDROCHLORIDE TABLETS [Concomitant]
     Active Substance: ONDANSETRON HYDROCHLORIDE
     Indication: VOMITING
     Route: 048
     Dates: start: 20201103, end: 20201105
  24. ONDANSETRON HYDROCHLORIDE TABLETS [Concomitant]
     Active Substance: ONDANSETRON HYDROCHLORIDE
     Indication: VOMITING
     Route: 048
     Dates: start: 20201119, end: 20201121
  25. RECOMBINANT HUMAN GRANULOCYTE COLONY?STIMULATING FACTOR INJECTION [Concomitant]
     Indication: WHITE BLOOD CELL COUNT DECREASED
     Dosage: 300UG/INHAL DAILY
     Route: 058
     Dates: start: 20201116, end: 20201117
  26. CISPLATIN. [Suspect]
     Active Substance: CISPLATIN
     Indication: CERVIX CARCINOMA
     Route: 042
     Dates: start: 20201027, end: 20201027
  27. SODIUM POTASSIUM MAGNESIUM CALCIUN AND GLUCOSE INJECTION [Concomitant]
     Indication: SUPPLEMENTATION THERAPY
     Dosage: 500.0ML ONCE/SINGLE ADMINISTRATION
     Route: 042
     Dates: start: 20201119, end: 20201119
  28. ONDANSETRON HYDROCHLORIDE TABLETS [Concomitant]
     Active Substance: ONDANSETRON HYDROCHLORIDE
     Indication: PROPHYLAXIS
     Route: 048
     Dates: start: 20201013, end: 20201016
  29. HEPARIN SODIUM INJECTION [Concomitant]
     Active Substance: HEPARIN SODIUM
     Indication: THROMBOSIS
     Dosage: 25000.0IU ONCE/SINGLE ADMINISTRATION
     Route: 042
     Dates: start: 20201027, end: 20201027
  30. FOSAPREPITANT DIMEGLUMINER FOR INJECTION [Concomitant]
     Indication: PROPHYLAXIS
     Dosage: 150.0MG ONCE/SINGLE ADMINISTRATION
     Route: 042
     Dates: start: 20201013, end: 20201013
  31. SODIUM POTASSIUM MAGNESIUM CALCIUN AND GLUCOSE INJECTION [Concomitant]
     Indication: SUPPLEMENTATION THERAPY
     Dosage: 500.0ML ONCE/SINGLE ADMINISTRATION
     Route: 042
     Dates: start: 20201103, end: 20201103
  32. RECOMBINANT HUMAN GRANULOCYTE COLONY?STIMULATING FACTOR INJECTION [Concomitant]
     Indication: WHITE BLOOD CELL COUNT DECREASED
     Dosage: 300UG/INHAL DAILY
     Route: 058
     Dates: start: 20201105, end: 20201106
  33. RECOMBINANT HUMAN INTERLEUKIN?11 FOR INJECTION [Concomitant]
     Indication: PLATELET COUNT DECREASED
     Route: 058
     Dates: start: 20201105, end: 20201106
  34. CAFFEIC ACID TABLETS [Concomitant]
     Indication: PLATELET COUNT DECREASED
     Route: 048
     Dates: start: 20201224
  35. DURVALUMAB. [Suspect]
     Active Substance: DURVALUMAB
     Indication: CERVIX CARCINOMA
     Route: 042
     Dates: start: 20201231, end: 20201231
  36. CISPLATIN. [Suspect]
     Active Substance: CISPLATIN
     Indication: CERVIX CARCINOMA
     Route: 042
     Dates: start: 20201013, end: 20201013
  37. EBRT [Suspect]
     Active Substance: RADIATION THERAPY
     Indication: CERVIX CARCINOMA
     Route: 065
  38. ONDANSETRON HYDROCHLORIDE TABLETS [Concomitant]
     Active Substance: ONDANSETRON HYDROCHLORIDE
     Indication: VOMITING
     Route: 048
     Dates: start: 20201013, end: 20201016
  39. ONDANSETRON HYDROCHLORIDE TABLETS [Concomitant]
     Active Substance: ONDANSETRON HYDROCHLORIDE
     Indication: PROPHYLAXIS
     Route: 048
     Dates: start: 20201103, end: 20201105
  40. ONDANSETRON HYDROCHLORIDE TABLETS [Concomitant]
     Active Substance: ONDANSETRON HYDROCHLORIDE
     Indication: PROPHYLAXIS
     Route: 048
     Dates: start: 20201127, end: 20201129
  41. RECOMBINANT HUMAN GRANULOCYTE COLONY?STIMULATING FACTOR INJECTION [Concomitant]
     Indication: WHITE BLOOD CELL COUNT DECREASED
     Dosage: 300UG/INHAL DAILY
     Route: 058
     Dates: start: 20201105, end: 20201106
  42. RECOMBINANT HUMAN GRANULOCYTE COLONY?STIMULATING FACTOR INJECTION [Concomitant]
     Indication: WHITE BLOOD CELL COUNT DECREASED
     Dosage: 300UG/INHAL DAILY
     Route: 058
     Dates: start: 20201109, end: 20201110
  43. RECOMBINANT HUMAN INTERLEUKIN?11 FOR INJECTION [Concomitant]
     Indication: PLATELET COUNT DECREASED
     Route: 058
     Dates: start: 20201109, end: 20201113
  44. CISPLATIN. [Suspect]
     Active Substance: CISPLATIN
     Indication: CERVIX CARCINOMA
     Route: 042
     Dates: start: 20201103, end: 20201103
  45. NADROPARIN CALCIUM INJECTION [Concomitant]
     Indication: THROMBOSIS
     Route: 058
     Dates: start: 20200918, end: 20200923
  46. SODIUM POTASSIUM MAGNESIUM CALCIUN AND GLUCOSE INJECTION [Concomitant]
     Indication: SUPPLEMENTATION THERAPY
     Route: 042
     Dates: start: 20201013, end: 20201013

REACTIONS (2)
  - White blood cell count decreased [Recovered/Resolved]
  - Neutrophil count decreased [Recovered/Resolved]

NARRATIVE: CASE EVENT DATE: 20201228
